FAERS Safety Report 9309712 (Version 1)
Quarter: 2013Q2

REPORT INFORMATION
  Report Type: Spontaneous
  Country: US (occurrence: US)
  Receive Date: 20130525
  Receipt Date: 20130525
  Transmission Date: 20140414
  Serious: No
  Sender: FDA-Public Use
  Company Number: US-BRISTOL-MYERS SQUIBB COMPANY-18733642

PATIENT
  Age: 57 Year
  Sex: Female
  Weight: 90.7 kg

DRUGS (1)
  1. BYDUREON [Suspect]
     Indication: TYPE 2 DIABETES MELLITUS
     Route: 058
     Dates: start: 20130224

REACTIONS (6)
  - Pain in extremity [Recovering/Resolving]
  - Dysgeusia [Recovered/Resolved]
  - Injection site nodule [Unknown]
  - Injection site haemorrhage [Unknown]
  - Wrong technique in drug usage process [Recovered/Resolved]
  - Underdose [Recovered/Resolved]
